FAERS Safety Report 7624919-3 (Version None)
Quarter: 2011Q3

REPORT INFORMATION
  Report Type: 
  Country: None (occurrence: None)
  Receive Date: 20110720
  Receipt Date: 20110711
  Transmission Date: 20111222
  Serious: Yes (Other)
  Sender: FDA-Public Use
  Company Number: FR-ASTRAZENECA-2011SE41700

PATIENT
  Age: 79 Year
  Sex: Male
  Weight: 60 kg

DRUGS (7)
  1. AMIKACIN [Suspect]
     Route: 042
     Dates: start: 20110321, end: 20110327
  2. TYGACIL [Suspect]
     Route: 042
     Dates: start: 20110514
  3. MEROPENEM [Suspect]
     Route: 042
     Dates: start: 20110322, end: 20110404
  4. MEROPENEM [Suspect]
     Route: 042
     Dates: start: 20110513
  5. AMIKACIN [Suspect]
     Route: 042
     Dates: start: 20110329, end: 20110404
  6. RAMIPRIL [Concomitant]
     Indication: BLOOD PRESSURE
  7. TYGACIL [Suspect]
     Route: 042
     Dates: start: 20110404

REACTIONS (4)
  - HYPOMAGNESAEMIA [None]
  - HYPOCALCAEMIA [None]
  - RENAL TUBULAR DISORDER [None]
  - HYPOPHOSPHATAEMIA [None]
